FAERS Safety Report 7733498-1 (Version None)
Quarter: 2011Q3

REPORT INFORMATION
  Report Type: 
  Country: None (occurrence: None)
  Receive Date: 20110907
  Receipt Date: 20110907
  Transmission Date: 20111222
  Serious: Yes (Hospitalization)
  Sender: FDA-Public Use
  Company Number: None

PATIENT
  Age: 3 Year
  Sex: Male
  Weight: 13 kg

DRUGS (1)
  1. PIPERACILLIN AND TAZOBACTAM [Suspect]
     Dates: start: 20110806, end: 20110816

REACTIONS (9)
  - DIARRHOEA [None]
  - DEVICE RELATED INFECTION [None]
  - ABDOMINAL PAIN [None]
  - VIRAL INFECTION [None]
  - C-REACTIVE PROTEIN INCREASED [None]
  - PYREXIA [None]
  - RASH ERYTHEMATOUS [None]
  - PANCYTOPENIA [None]
  - LETHARGY [None]
